FAERS Safety Report 7347969-3 (Version None)
Quarter: 2011Q1

REPORT INFORMATION
  Report Type: 
  Country: None (occurrence: None)
  Receive Date: 20110311
  Receipt Date: 20110225
  Transmission Date: 20110831
  Serious: Yes (Hospitalization)
  Sender: FDA-Public Use
  Company Number: US-BAYER-2011-022044

PATIENT
  Sex: Female
  Weight: 70.295 kg

DRUGS (1)
  1. YAZ [Suspect]
     Indication: ORAL CONTRACEPTION
     Dosage: UNK
     Dates: end: 20070530

REACTIONS (7)
  - THROMBOSIS [None]
  - PULMONARY EMBOLISM [None]
  - MIGRAINE [None]
  - DYSPNOEA [None]
  - ACNE [None]
  - ANGINA PECTORIS [None]
  - OVARIAN CYST [None]
